FAERS Safety Report 10232429 (Version 1)
Quarter: 2014Q2

REPORT INFORMATION
  Report Type: Spontaneous
  Country: US (occurrence: None)
  Receive Date: 20140611
  Receipt Date: 20140611
  Transmission Date: 20141212
  Serious: Yes (Other)
  Sender: FDA-Public Use
  Company Number: None

PATIENT
  Age: 64 Year
  Sex: Female

DRUGS (8)
  1. XELJANZ 5 MG PFIZER [Suspect]
     Indication: RHEUMATOID ARTHRITIS
     Dosage: ONE TABLET, BID, ORAL
     Route: 048
     Dates: start: 20130916, end: 20140114
  2. LEVOTHYROXINE [Concomitant]
  3. CARAFATE [Concomitant]
  4. VITAMIN D [Concomitant]
  5. OMEPRAZOLE [Concomitant]
  6. FUROSEMIDE [Concomitant]
  7. SPIRONOLACTONE [Concomitant]
  8. LORAZEPAM [Concomitant]

REACTIONS (3)
  - Herpes zoster [None]
  - Nephrotic syndrome [None]
  - Glomerulonephritis minimal lesion [None]
